FAERS Safety Report 5170046-7 (Version None)
Quarter: 2006Q4

REPORT INFORMATION
  Report Type: 
  Country: None (occurrence: None)
  Receive Date: 20061212
  Receipt Date: 20061207
  Transmission Date: 20070319
  Serious: Yes (Death, Other)
  Sender: FDA-Public Use
  Company Number: HU-BRISTOL-MYERS SQUIBB COMPANY-13604459

PATIENT
  Age: 55 Year
  Sex: Male
  Weight: 85 kg

DRUGS (7)
  1. CARBOPLATIN [Suspect]
     Indication: SMALL CELL LUNG CANCER STAGE UNSPECIFIED
     Route: 042
     Dates: start: 20061113, end: 20061113
  2. ETOPOSIDE [Suspect]
     Indication: SMALL CELL LUNG CANCER STAGE UNSPECIFIED
     Route: 042
     Dates: start: 20061113, end: 20061113
  3. THEOPHYLLINE [Concomitant]
     Indication: BRONCHITIS
     Dates: start: 20061102, end: 20061128
  4. PANTOPRAZOLE SODIUM [Concomitant]
     Indication: PROPHYLAXIS
     Dates: start: 20061102, end: 20061128
  5. NAPROXEN [Concomitant]
     Indication: BACK PAIN
     Dates: start: 20061108, end: 20061128
  6. NADROPARIN CALCIUM [Concomitant]
     Indication: THROMBOSIS PROPHYLAXIS
     Dates: start: 20061116, end: 20061121
  7. AMBROXOL [Concomitant]
     Indication: BRONCHITIS
     Dates: start: 20061108, end: 20061128

REACTIONS (4)
  - LUNG ABSCESS [None]
  - PANCYTOPENIA [None]
  - PYOTHORAX [None]
  - SEPSIS [None]
